FAERS Safety Report 8605845-X (Version None)
Quarter: 2012Q3

REPORT INFORMATION
  Report Type: 
  Country: None (occurrence: None)
  Receive Date: 20120820
  Receipt Date: 20120808
  Transmission Date: 20120928
  Serious: Yes (Congenital Anomaly)
  Sender: FDA-Public Use
  Company Number: US-GLAXOSMITHKLINE-A0989978A

PATIENT
  Sex: Female

DRUGS (3)
  1. PAXIL [Suspect]
     Indication: PRODUCT USED FOR UNKNOWN INDICATION
     Route: 064
  2. ZESTRIL [Concomitant]
     Route: 064
  3. TRAZODONE HYDROCHLORIDE [Concomitant]
     Route: 064

REACTIONS (4)
  - PATENT DUCTUS ARTERIOSUS [None]
  - ATRIAL SEPTAL DEFECT [None]
  - POLYDACTYLY [None]
  - FOETAL EXPOSURE DURING PREGNANCY [None]
